FAERS Safety Report 5933462-9 (Version None)
Quarter: 2008Q4

REPORT INFORMATION
  Report Type: 
  Country: None (occurrence: None)
  Receive Date: 20081023
  Receipt Date: 20081014
  Transmission Date: 20090506
  Serious: Yes (Hospitalization)
  Sender: FDA-Public Use
  Company Number: 2007BI025252

PATIENT
  Sex: Female

DRUGS (22)
  1. AVONEX [Suspect]
     Indication: MULTIPLE SCLEROSIS
     Dosage: 30 UG; QW; IM, 30 UG; QW; IM
     Route: 030
     Dates: start: 19990101
  2. EFFEXOR XR [Concomitant]
  3. CARDURA [Concomitant]
  4. COZAAR [Concomitant]
  5. LASIX [Concomitant]
  6. METHOTREXATE [Concomitant]
  7. NEXIUM [Concomitant]
  8. WELLBUTRIN SR [Concomitant]
  9. CRESTOR [Concomitant]
  10. ZANAFLEX [Concomitant]
  11. KLONOPIN [Concomitant]
  12. ARICEPT [Concomitant]
  13. LORTAB [Concomitant]
  14. PREDNISONE TAB [Concomitant]
  15. PROVIGIL [Concomitant]
  16. TOPAMAX [Concomitant]
  17. PERCOCET [Concomitant]
  18. OXYCONTIN SR [Concomitant]
  19. OXYCONTIN SA [Concomitant]
  20. PRISTIQ [Concomitant]
  21. CYMBALTA [Concomitant]
  22. MIRAPEX [Concomitant]

REACTIONS (20)
  - ADRENAL INSUFFICIENCY [None]
  - ASTHENIA [None]
  - ATAXIA [None]
  - BACTERIA URINE IDENTIFIED [None]
  - BLOOD PRESSURE DECREASED [None]
  - CONDITION AGGRAVATED [None]
  - DEHYDRATION [None]
  - DEPRESSION [None]
  - GAIT DISTURBANCE [None]
  - HYPOAESTHESIA [None]
  - JOINT DISLOCATION [None]
  - MULTIPLE SCLEROSIS [None]
  - MUSCLE SPASMS [None]
  - MUSCLE SPASTICITY [None]
  - PAIN [None]
  - PARAESTHESIA [None]
  - SKIN INFECTION [None]
  - ULCER [None]
  - WEIGHT INCREASED [None]
  - WOUND INFECTION [None]
